FAERS Safety Report 7108178-6 (Version None)
Quarter: 2010Q4

REPORT INFORMATION
  Report Type: 
  Country: None (occurrence: None)
  Receive Date: 20101117
  Receipt Date: 20101105
  Transmission Date: 20110411
  Serious: Yes (Hospitalization, Other)
  Sender: FDA-Public Use
  Company Number: US-JNJFOC-20101104932

PATIENT
  Age: 58 Year
  Sex: Male

DRUGS (3)
  1. RISPERIDONE [Suspect]
     Indication: PSYCHOTIC DISORDER
     Route: 065
  2. METHADONE HCL [Concomitant]
     Route: 065
  3. CLONAZEPAM [Concomitant]
     Dosage: IN THE EVENING
     Route: 065

REACTIONS (5)
  - BULBAR PALSY [None]
  - GYNAECOMASTIA [None]
  - HYPERPROLACTINAEMIA [None]
  - VIITH NERVE PARALYSIS [None]
  - WEIGHT DECREASED [None]
